APPROVED DRUG PRODUCT: ALA-CORT
Active Ingredient: HYDROCORTISONE
Strength: 1%
Dosage Form/Route: LOTION;TOPICAL
Application: A083201 | Product #001
Applicant: CROWN LABORATORIES INC
Approved: Approved Prior to Jan 1, 1982 | RLD: No | RS: No | Type: DISCN